FAERS Safety Report 7892752-3 (Version None)
Quarter: 2011Q4

REPORT INFORMATION
  Report Type: 
  Country: None (occurrence: None)
  Receive Date: 20111104
  Receipt Date: 20111024
  Transmission Date: 20120403
  Serious: Yes (Other)
  Sender: FDA-Public Use
  Company Number: FR-BRISTOL-MYERS SQUIBB COMPANY-16184921

PATIENT
  Age: 63 Year
  Sex: Female

DRUGS (8)
  1. OXAZEPAM [Concomitant]
  2. ACETAMINOPHEN AND TRAMADOL HCL [Concomitant]
  3. ONGLYZA [Suspect]
     Indication: DIABETES MELLITUS
     Route: 048
     Dates: start: 20110221, end: 20110228
  4. TOCO [Concomitant]
     Dosage: STRENGTH 500 UNIT NOT MENTIONED
  5. ESCITALOPRAM OXALATE [Concomitant]
  6. CANDESARTAN CILEXETIL AND HYDROCHLOROTHIAZIDE [Concomitant]
     Indication: HYPERTENSION
  7. CRESTOR [Suspect]
     Dosage: INTERRUPTED ON: 28-FEB-2011 RESTARTED ON: 29-AUG-2011
  8. TENORMIN [Concomitant]

REACTIONS (5)
  - BLOOD ALKALINE PHOSPHATASE INCREASED [None]
  - GAMMA-GLUTAMYLTRANSFERASE INCREASED [None]
  - ASTHENIA [None]
  - ABDOMINAL PAIN UPPER [None]
  - TRANSAMINASES INCREASED [None]
